FAERS Safety Report 24151135 (Version 1)
Quarter: 2024Q3

REPORT INFORMATION
  Report Type: Spontaneous
  Country: US (occurrence: US)
  Receive Date: 20240730
  Receipt Date: 20240730
  Transmission Date: 20241016
  Serious: Yes (Other)
  Sender: RANBAXY
  Company Number: US-SUN PHARMACEUTICAL INDUSTRIES LTD-2024R1-459197

PATIENT
  Age: 61 Year
  Sex: Female

DRUGS (1)
  1. ACETAZOLAMIDE [Suspect]
     Active Substance: ACETAZOLAMIDE
     Indication: Headache
     Dosage: 125 MILLIGRAM/AT BED WITH AN INCREASE EVERY 5 DAYS
     Route: 065

REACTIONS (2)
  - Dyspnoea [Unknown]
  - Paraesthesia [Unknown]
